FAERS Safety Report 8176868-2 (Version None)
Quarter: 2012Q1

REPORT INFORMATION
  Report Type: 
  Country: None (occurrence: None)
  Receive Date: 20120301
  Receipt Date: 20120227
  Transmission Date: 20120608
  Serious: Yes (Other)
  Sender: FDA-Public Use
  Company Number: US-BAYER-2012-019494

PATIENT

DRUGS (1)
  1. ALEVE (CAPLET) [Suspect]
     Route: 048

REACTIONS (7)
  - PARAESTHESIA [None]
  - SWOLLEN TONGUE [None]
  - DYSPNOEA [None]
  - CHEST DISCOMFORT [None]
  - PRURITUS [None]
  - PRODUCTIVE COUGH [None]
  - HYPERSENSITIVITY [None]
